FAERS Safety Report 4513743-6 (Version None)
Quarter: 2004Q4

REPORT INFORMATION
  Report Type: 
  Country: None (occurrence: None)
  Receive Date: 20041124
  Receipt Date: 20041110
  Transmission Date: 20050328
  Serious: Yes (Hospitalization)
  Sender: FDA-Public Use
  Company Number: WAES 0407USA02167

PATIENT
  Age: 73 Year
  Sex: Male

DRUGS (7)
  1. SINGULAIR [Suspect]
     Indication: ASTHMA
     Dosage: 10 MG/DAILY, PO
     Route: 048
     Dates: start: 20030712, end: 20040525
  2. CONIEL [Concomitant]
  3. DIOVAN [Concomitant]
  4. INTAL [Concomitant]
  5. MAINTATE [Concomitant]
  6. PREDONINE [Concomitant]
  7. UNIPHYL [Concomitant]

REACTIONS (3)
  - INTERSTITIAL LUNG DISEASE [None]
  - PNEUMONIA BACTERIAL [None]
  - PULMONARY FIBROSIS [None]
